FAERS Safety Report 9027790 (Version 2)
Quarter: 2013Q1

REPORT INFORMATION
  Report Type: Report from Study
  Country: CA (occurrence: CA)
  Receive Date: 20130124
  Receipt Date: 20130201
  Transmission Date: 20140127
  Serious: Yes (Other)
  Sender: FDA-Public Use
  Company Number: CA-JNJFOC-20130107980

PATIENT
  Age: 62 None
  Sex: Female
  Weight: 43 kg

DRUGS (1)
  1. REMICADE [Suspect]
     Indication: CROHN^S DISEASE
     Dosage: FIRST DOSE ON THURSDAY
     Route: 042
     Dates: start: 201301

REACTIONS (11)
  - Vision blurred [Unknown]
  - Asthenia [Unknown]
  - Gastroenteritis norovirus [Not Recovered/Not Resolved]
  - Decreased appetite [Unknown]
  - Burning sensation [Unknown]
  - Pruritus [Recovered/Resolved]
  - Infusion related reaction [Recovered/Resolved]
  - Vulvovaginal pruritus [Unknown]
  - Headache [Unknown]
  - Nausea [Unknown]
  - Influenza like illness [Unknown]
